FAERS Safety Report 5115070-5 (Version None)
Quarter: 2006Q3

REPORT INFORMATION
  Report Type: 
  Country: None (occurrence: None)
  Receive Date: 20060925
  Receipt Date: 20060925
  Transmission Date: 20061208
  Serious: Yes (Hospitalization)
  Sender: FDA-Public Use
  Company Number: None

PATIENT
  Age: 74 Year
  Sex: Male
  Weight: 78 kg

DRUGS (1)
  1. ALEVE [Suspect]
     Dosage: PO
     Route: 048

REACTIONS (11)
  - BLOOD PRESSURE ABNORMAL [None]
  - CARDIAC STRESS TEST ABNORMAL [None]
  - DECREASED APPETITE [None]
  - DIABETIC NEPHROPATHY [None]
  - ELECTROCARDIOGRAM QT PROLONGED [None]
  - GLOMERULONEPHRITIS [None]
  - HYPERKALAEMIA [None]
  - HYPOTHERMIA [None]
  - OBSTRUCTION [None]
  - RENAL FAILURE ACUTE [None]
  - SINUS BRADYCARDIA [None]
